FAERS Safety Report 7984177-7 (Version None)
Quarter: 2011Q4

REPORT INFORMATION
  Report Type: 
  Country: None (occurrence: None)
  Receive Date: 20111213
  Receipt Date: 20110906
  Transmission Date: 20120403
  Serious: Yes (Other)
  Sender: FDA-Public Use
  Company Number: FK201101888

PATIENT
  Age: 72 Year
  Sex: Male

DRUGS (4)
  1. OXALIPLATIN [Suspect]
     Indication: RECTOSIGMOID CANCER METASTATIC
  2. BEVACIZUMAB (BEVACIZUMAB) (BEVACIZUMAB) [Suspect]
     Indication: RECTOSIGMOID CANCER METASTATIC
  3. LEUCOVORIN CALCIUM [Suspect]
     Indication: RECTOSIGMOID CANCER METASTATIC
  4. FLUOROURACIL [Suspect]
     Indication: RECTOSIGMOID CANCER METASTATIC

REACTIONS (2)
  - SPLENOMEGALY [None]
  - THROMBOCYTOPENIA [None]
